FAERS Safety Report 6196554-8 (Version None)
Quarter: 2009Q2

REPORT INFORMATION
  Report Type: 
  Country: None (occurrence: None)
  Receive Date: 20090518
  Receipt Date: 20090518
  Transmission Date: 20091009
  Serious: Yes (Other)
  Sender: FDA-Public Use
  Company Number: None

PATIENT
  Age: 39 Year
  Sex: Female
  Weight: 78.0187 kg

DRUGS (2)
  1. CLARITHROMYCIN [Suspect]
     Indication: SINUSITIS
     Dosage: 500 MG X 7 DAYS X2 DAILY PO
     Route: 048
     Dates: start: 20090409, end: 20090413
  2. CLARITHROMYCIN [Suspect]
     Dosage: 500 MG X14 DAYS X2 DAILY PO
     Route: 048
     Dates: start: 20090507, end: 20090521

REACTIONS (5)
  - ANOSMIA [None]
  - CRYING [None]
  - DEPRESSION [None]
  - DYSGEUSIA [None]
  - FEELING GUILTY [None]
